FAERS Safety Report 25940481 (Version 1)
Quarter: 2025Q4

REPORT INFORMATION
  Report Type: Spontaneous
  Country: VN (occurrence: VN)
  Receive Date: 20251020
  Receipt Date: 20251020
  Transmission Date: 20260117
  Serious: Yes (Life-Threatening)
  Sender: SANDOZ
  Company Number: VN-002147023-NVSC2025VN143086

PATIENT
  Age: 33 Year
  Sex: Female

DRUGS (1)
  1. OXALIPLATIN [Suspect]
     Active Substance: OXALIPLATIN
     Indication: Product used for unknown indication
     Dosage: UNK
     Route: 065

REACTIONS (7)
  - Blood pressure abnormal [Recovered/Resolved]
  - Chest discomfort [Recovered/Resolved]
  - Unresponsive to stimuli [Recovered/Resolved]
  - Pulse abnormal [Recovered/Resolved]
  - Erythema [Recovered/Resolved]
  - Dyspnoea [Recovered/Resolved]
  - Rash [Recovered/Resolved]

NARRATIVE: CASE EVENT DATE: 20230501
